FAERS Safety Report 15746766 (Version 1)
Quarter: 2018Q4

REPORT INFORMATION
  Report Type: Spontaneous
  Country: US (occurrence: US)
  Receive Date: 20181220
  Receipt Date: 20181220
  Transmission Date: 20190205
  Serious: No
  Sender: FDA-Public Use
  Company Number: US-SA-2018SA344600

PATIENT
  Age: 63 Year
  Sex: Female

DRUGS (1)
  1. APIDRA [Suspect]
     Active Substance: INSULIN GLULISINE
     Indication: TYPE 2 DIABETES MELLITUS
     Dosage: UNK
     Route: 065
     Dates: start: 20181105

REACTIONS (2)
  - Blood glucose increased [Recovered/Resolved]
  - Glycosylated haemoglobin increased [Unknown]
